FAERS Safety Report 25347163 (Version 2)
Quarter: 2025Q2

REPORT INFORMATION
  Report Type: Report from Study
  Country: US (occurrence: US)
  Receive Date: 20250522
  Receipt Date: 20250529
  Transmission Date: 20250716
  Serious: Yes (Hospitalization, Other)
  Sender: TAKEDA
  Company Number: US-TAKEDA-2023TUS119452

PATIENT
  Age: 75 Year
  Sex: Female
  Weight: 89 kg

DRUGS (16)
  1. VEDOLIZUMAB [Suspect]
     Active Substance: VEDOLIZUMAB
     Indication: Proctitis ulcerative
  2. VEDOLIZUMAB [Suspect]
     Active Substance: VEDOLIZUMAB
     Indication: Colitis ulcerative
     Dosage: 108 MILLIGRAM, Q2WEEKS
  3. VEDOLIZUMAB [Suspect]
     Active Substance: VEDOLIZUMAB
  4. LATANOPROST [Concomitant]
     Active Substance: LATANOPROST
  5. GABAPENTIN [Concomitant]
     Active Substance: GABAPENTIN
  6. TIMOLOL MALEATE [Concomitant]
     Active Substance: TIMOLOL MALEATE
  7. OMEPRAZOLE [Concomitant]
     Active Substance: OMEPRAZOLE
     Indication: Gastrooesophageal reflux disease
  8. TRESIBA [Concomitant]
     Active Substance: INSULIN DEGLUDEC
     Indication: Diabetes mellitus
  9. FIASP [Concomitant]
     Active Substance: INSULIN ASPART
     Indication: Diabetes mellitus
  10. DICYCLOMINE [Concomitant]
     Active Substance: DICYCLOMINE HYDROCHLORIDE
  11. FAMOTIDINE [Concomitant]
     Active Substance: FAMOTIDINE
  12. FERRIC POLYSACCHARIDE COMPLEX [Concomitant]
     Active Substance: FERRIC POLYSACCHARIDE COMPLEX
     Indication: Iron deficiency
  13. FENOFIBRATE [Concomitant]
     Active Substance: FENOFIBRATE
  14. OCUVITE [Concomitant]
     Active Substance: VITAMINS
  15. VITAMIN K [Concomitant]
     Active Substance: PHYTONADIONE
  16. ZOLPIDEM [Concomitant]
     Active Substance: ZOLPIDEM TARTRATE

REACTIONS (6)
  - Pulmonary oedema [Unknown]
  - Asthma [Unknown]
  - Tremor [Unknown]
  - Inappropriate schedule of product administration [Unknown]
  - Product dose omission issue [Unknown]
  - Malaise [Unknown]

NARRATIVE: CASE EVENT DATE: 20250511
